FAERS Safety Report 6671690-8 (Version None)
Quarter: 2010Q2

REPORT INFORMATION
  Report Type: 
  Country: None (occurrence: None)
  Receive Date: 20100406
  Receipt Date: 20100406
  Transmission Date: 20101027
  Serious: Yes (Life-Threatening, Hospitalization, Disabling, Other)
  Sender: FDA-Public Use
  Company Number: None

PATIENT
  Age: 37 Year
  Sex: Male
  Weight: 117.028 kg

DRUGS (1)
  1. LEVAQUIN [Suspect]
     Indication: LYMPHADENOPATHY
     Dosage: 500MG 1 DAILY PO
     Route: 048
     Dates: start: 20100320, end: 20100325

REACTIONS (5)
  - CORONARY ARTERY OCCLUSION [None]
  - HEART RATE DECREASED [None]
  - MUSCLE SPASMS [None]
  - MYOCARDIAL INFARCTION [None]
  - VASOCONSTRICTION [None]
